FAERS Safety Report 5448621-1 (Version None)
Quarter: 2007Q3

REPORT INFORMATION
  Report Type: 
  Country: None (occurrence: None)
  Receive Date: 20070906
  Receipt Date: 20070906
  Transmission Date: 20080115
  Serious: No
  Sender: FDA-Public Use
  Company Number: None

PATIENT
  Age: 59 Year
  Sex: Male

DRUGS (2)
  1. CISPLATIN [Suspect]
     Dosage: 150MG ONCE IV
     Route: 042
     Dates: start: 20070713, end: 20070714
  2. FLUOROURACIL INJ [Suspect]
     Dosage: 150MG ONCE IV
     Route: 042
     Dates: start: 20070713, end: 20070714

REACTIONS (2)
  - NAUSEA [None]
  - VOMITING [None]
